FAERS Safety Report 6427588-3 (Version None)
Quarter: 2009Q4

REPORT INFORMATION
  Report Type: 
  Country: None (occurrence: None)
  Receive Date: 20091104
  Receipt Date: 20091023
  Transmission Date: 20100525
  Serious: Yes (Disabling, Other)
  Sender: FDA-Public Use
  Company Number: US-PFIZER INC-2006049017

PATIENT
  Sex: Male
  Weight: 68.04 kg

DRUGS (1)
  1. NEURONTIN [Suspect]
     Indication: OESOPHAGEAL SPASM
     Dosage: 6 OF THE 300 MG, DAILY
     Route: 065
     Dates: start: 19980101

REACTIONS (17)
  - ANXIETY [None]
  - CEREBROVASCULAR ACCIDENT [None]
  - CONFUSIONAL STATE [None]
  - DRUG EFFECT DECREASED [None]
  - FATIGUE [None]
  - GAIT DISTURBANCE [None]
  - MENTAL DISORDER [None]
  - MENTAL IMPAIRMENT [None]
  - NERVOUS SYSTEM DISORDER [None]
  - NERVOUSNESS [None]
  - OESOPHAGEAL SPASM [None]
  - PALPITATIONS [None]
  - REGURGITATION [None]
  - RETCHING [None]
  - SOMNOLENCE [None]
  - SPEECH DISORDER [None]
  - TEMPERATURE INTOLERANCE [None]
